FAERS Safety Report 24262825 (Version 3)
Quarter: 2024Q4

REPORT INFORMATION
  Report Type: Spontaneous
  Country: JP (occurrence: JP)
  Receive Date: 20240829
  Receipt Date: 20241207
  Transmission Date: 20250114
  Serious: Yes (Other)
  Sender: ROCHE
  Company Number: JP-CHUGAI-2024029294

PATIENT
  Age: 0 Day
  Sex: Male
  Weight: 3.328 kg

DRUGS (2)
  1. ACTEMRA [Suspect]
     Active Substance: TOCILIZUMAB
     Indication: Product used for unknown indication
     Dosage: UNK
     Route: 064
  2. PREDONINE [Concomitant]
     Active Substance: PREDNISOLONE
     Dosage: 3 MG + 5 MG AS NEEDED
     Route: 064

REACTIONS (2)
  - Pulmonary valve stenosis congenital [Unknown]
  - Foetal exposure during pregnancy [Unknown]

NARRATIVE: CASE EVENT DATE: 20240615
